FAERS Safety Report 4451349-8 (Version None)
Quarter: 2004Q3

REPORT INFORMATION
  Report Type: 
  Country: None (occurrence: None)
  Receive Date: 20040916
  Receipt Date: 20040901
  Transmission Date: 20050211
  Serious: Yes (Hospitalization)
  Sender: FDA-Public Use
  Company Number: JP-MERCK-0409USA00133

PATIENT
  Age: 60 Year
  Sex: Female

DRUGS (8)
  1. FOSAMAX [Suspect]
     Indication: OSTEOPOROSIS
     Route: 048
     Dates: start: 20020723, end: 20030620
  2. ELCITONIN [Concomitant]
     Route: 051
     Dates: start: 20020723, end: 20030620
  3. GASTER [Concomitant]
     Indication: GASTRITIS
     Route: 048
     Dates: start: 20001201, end: 20030620
  4. ISONIAZID [Concomitant]
     Route: 065
     Dates: start: 20001201, end: 20040621
  5. LOXONIN [Suspect]
     Indication: BACK PAIN
     Route: 048
     Dates: start: 20020723, end: 20030620
  6. PREDNISOLONE [Suspect]
     Indication: INTERSTITIAL LUNG DISEASE
     Route: 048
     Dates: start: 20001201
  7. SIMVASTATIN [Concomitant]
     Indication: HYPERCHOLESTEROLAEMIA
     Route: 048
     Dates: start: 20001201
  8. BAKTAR [Concomitant]
     Indication: SECONDARY IMMUNODEFICIENCY
     Route: 048
     Dates: start: 20001201

REACTIONS (1)
  - ANAEMIA [None]
